FAERS Safety Report 7201312-9 (Version None)
Quarter: 2010Q4

REPORT INFORMATION
  Report Type: 
  Country: None (occurrence: None)
  Receive Date: 20101227
  Receipt Date: 20101227
  Transmission Date: 20110411
  Serious: Yes (Other)
  Sender: FDA-Public Use
  Company Number: None

PATIENT
  Age: 76 Year
  Weight: 74.3899 kg

DRUGS (2)
  1. AZITHROMYCIN [Suspect]
     Indication: ACUTE SINUSITIS
     Dosage: 250 MG 2 1ST DAY
     Dates: start: 20101222, end: 20101222
  2. AZITHROMYCIN [Suspect]
     Indication: PHARYNGITIS
     Dosage: 250 MG 2 1ST DAY
     Dates: start: 20101222, end: 20101222

REACTIONS (3)
  - ERYTHEMA [None]
  - SKIN DISCOLOURATION [None]
  - SWELLING [None]
